FAERS Safety Report 22189093 (Version 1)
Quarter: 2023Q2

REPORT INFORMATION
  Report Type: Spontaneous
  Country: US (occurrence: US)
  Receive Date: 20230410
  Receipt Date: 20230410
  Transmission Date: 20230721
  Serious: No
  Sender: FDA-Public Use
  Company Number: US-JNJFOC-20230379864

PATIENT
  Age: 58 Year
  Sex: Male

DRUGS (3)
  1. ERLEADA [Suspect]
     Active Substance: APALUTAMIDE
     Indication: Prostate cancer
     Route: 048
     Dates: start: 20220303
  2. ORGOVYX [Suspect]
     Active Substance: RELUGOLIX
     Indication: Prostate cancer
     Route: 048
     Dates: start: 20220303
  3. ORGOVYX [Suspect]
     Active Substance: RELUGOLIX
     Route: 048
     Dates: start: 20220403

REACTIONS (10)
  - Fatigue [Unknown]
  - Hot flush [Not Recovered/Not Resolved]
  - Gastrooesophageal reflux disease [Unknown]
  - Product dose omission issue [Unknown]
  - Decreased appetite [Unknown]
  - Night sweats [Not Recovered/Not Resolved]
  - Pollakiuria [Unknown]
  - Treatment noncompliance [Unknown]
  - Insomnia [Unknown]
  - Discomfort [Unknown]

NARRATIVE: CASE EVENT DATE: 20220301
